FAERS Safety Report 8625935-5 (Version None)
Quarter: 2012Q3

REPORT INFORMATION
  Report Type: 
  Country: None (occurrence: None)
  Receive Date: 20120827
  Receipt Date: 20120822
  Transmission Date: 20120928
  Serious: Yes (Hospitalization, Other)
  Sender: FDA-Public Use
  Company Number: US-ROCHE-790747

PATIENT
  Sex: Male
  Weight: 74.456 kg

DRUGS (1)
  1. ACCUTANE [Suspect]
     Indication: ROSACEA
     Route: 065
     Dates: start: 19941020, end: 19950410

REACTIONS (4)
  - CROHN'S DISEASE [None]
  - INTESTINAL OBSTRUCTION [None]
  - INFLAMMATORY BOWEL DISEASE [None]
  - COLITIS ULCERATIVE [None]
